FAERS Safety Report 16750711 (Version 2)
Quarter: 2019Q3

REPORT INFORMATION
  Report Type: Spontaneous
  Country: US (occurrence: US)
  Receive Date: 20190828
  Receipt Date: 20190903
  Transmission Date: 20191005
  Serious: Yes (Hospitalization, Other)
  Sender: FDA-Public Use
  Company Number: US-PFIZER INC-2019367669

PATIENT
  Age: 29 Year
  Sex: Female

DRUGS (9)
  1. PREDNISONE. [Concomitant]
     Active Substance: PREDNISONE
     Dosage: 50 MG, DAILY
  2. RIFAMPIN. [Concomitant]
     Active Substance: RIFAMPIN
     Indication: STAPHYLOCOCCAL INFECTION
  3. VANCOMYCIN HCL [Suspect]
     Active Substance: VANCOMYCIN HYDROCHLORIDE
     Indication: RASH MACULO-PAPULAR
     Dosage: 1500 MG, UNK (1500 MG/2L OF DIALYSATE IN AN OVERNIGHT DWELL)
     Route: 033
  4. VANCOMYCIN HCL [Suspect]
     Active Substance: VANCOMYCIN HYDROCHLORIDE
     Indication: DEVICE RELATED INFECTION
     Dosage: 1500 MG, UNK (1500 MG/2 L OF DIALYSATE THE PATIENT WENT HOME FOR AN OVERNIGHT DWELL)
     Route: 033
  5. METAPROTERENOL [ORCIPRENALINE] [Concomitant]
     Dosage: UNK (INHALER)
  6. VANCOMYCIN HCL [Suspect]
     Active Substance: VANCOMYCIN HYDROCHLORIDE
     Indication: STAPHYLOCOCCAL INFECTION
  7. PRAZOSIN. [Concomitant]
     Active Substance: PRAZOSIN
     Dosage: UNK
  8. VANCOMYCIN HCL [Suspect]
     Active Substance: VANCOMYCIN HYDROCHLORIDE
     Indication: CATHETER SITE INFECTION
  9. RIFAMPIN. [Concomitant]
     Active Substance: RIFAMPIN
     Indication: CATHETER SITE INFECTION
     Dosage: 300 MG, 2X/DAY

REACTIONS (2)
  - Erythema multiforme [Recovered/Resolved]
  - Dermatitis exfoliative [Recovered/Resolved]
